FAERS Safety Report 22174256 (Version 3)
Quarter: 2023Q4

REPORT INFORMATION
  Report Type: Report from Study
  Country: CA (occurrence: CA)
  Receive Date: 20230405
  Receipt Date: 20231117
  Transmission Date: 20240110
  Serious: Yes (Other)
  Sender: FDA-Public Use
  Company Number: CA-JNJFOC-20230375161

PATIENT
  Age: 8 Decade
  Sex: Female

DRUGS (3)
  1. STELARA [Suspect]
     Active Substance: USTEKINUMAB
     Indication: Crohn^s disease
     Route: 058
     Dates: start: 20190114, end: 2019
  2. STELARA [Suspect]
     Active Substance: USTEKINUMAB
     Dosage: RESUMPTION OF TREATMENT WITH IV RE-INDUCTION
     Route: 042
  3. STELARA [Suspect]
     Active Substance: USTEKINUMAB
     Dosage: RESUMPTION OF TREATMENT WITH IV RE-INDUCTION AND FREQUENCY EVERY 4 WEEKS
     Route: 058
     Dates: end: 20230524

REACTIONS (5)
  - Abdominal abscess [Unknown]
  - Inflammatory bowel disease [Unknown]
  - Treatment failure [Unknown]
  - Off label use [Unknown]
  - Off label use [Unknown]
